FAERS Safety Report 7179143-8 (Version None)
Quarter: 2010Q4

REPORT INFORMATION
  Report Type: 
  Country: None (occurrence: None)
  Receive Date: 20101221
  Receipt Date: 20101202
  Transmission Date: 20110411
  Serious: No
  Sender: FDA-Public Use
  Company Number: US-PFIZER INC-2010165031

PATIENT
  Age: 77 Year
  Sex: Female
  Weight: 52.154 kg

DRUGS (5)
  1. CENTRUM SILVER ULTRA WOMEN'S [Suspect]
     Indication: SUPPLEMENTATION THERAPY
     Dosage: 1 TABLET, 1X/DAY
     Route: 048
     Dates: start: 20101124, end: 20101201
  2. LIPITOR [Suspect]
  3. WELCHOL [Concomitant]
  4. CALCIUM W/MAGNESIUM [Concomitant]
  5. FLAXSEED OIL [Concomitant]

REACTIONS (2)
  - HYPERSENSITIVITY [None]
  - RASH [None]
